FAERS Safety Report 10613220 (Version 1)
Quarter: 2014Q4

REPORT INFORMATION
  Report Type: Spontaneous
  Country: AU (occurrence: AU)
  Receive Date: 20141128
  Receipt Date: 20141128
  Transmission Date: 20150529
  Serious: Yes (Hospitalization, Other)
  Sender: FDA-Public Use
  Company Number: AU-BRISTOL-MYERS SQUIBB COMPANY-21629407

PATIENT
  Age: 93 Year
  Sex: Female

DRUGS (11)
  1. SERETIDE [Concomitant]
     Active Substance: FLUTICASONE FUROATE\SALMETEROL XINAFOATE
  2. SPIRIVA [Concomitant]
     Active Substance: TIOTROPIUM BROMIDE MONOHYDRATE
  3. AUGMENTIN DUO FORTE [Concomitant]
     Active Substance: AMOXICILLIN\CLAVULANATE POTASSIUM
  4. PREDNISONE. [Concomitant]
     Active Substance: PREDNISONE
  5. HALOPERIDOL. [Concomitant]
     Active Substance: HALOPERIDOL
  6. SALBUTAMOL [Concomitant]
     Active Substance: ALBUTEROL
  7. ELIQUIS [Suspect]
     Active Substance: APIXABAN
     Indication: PRODUCT USED FOR UNKNOWN INDICATION
     Dosage: 2.5 MG, BID
     Route: 048
  8. METOPROLOL [Concomitant]
     Active Substance: METOPROLOL
  9. DIGOXIN. [Concomitant]
     Active Substance: DIGOXIN
  10. VITAMIN D [Concomitant]
     Active Substance: CHOLECALCIFEROL
  11. GTN PATCH [Concomitant]

REACTIONS (2)
  - Pneumonia aspiration [Unknown]
  - Wrong technique in drug usage process [Unknown]

NARRATIVE: CASE EVENT DATE: 201411
